FAERS Safety Report 8715141 (Version 2)
Quarter: 2012Q4

REPORT INFORMATION
  Report Type: 
  Country: US (occurrence: US)
  Receive Date: 20120809
  Receipt Date: 20120906
  Transmission Date: 20130627
  Serious: Yes (Other)
  Sender: FDA-Public Use
  Company Number: US-PFIZER INC-2012190679

PATIENT
  Sex: Male

DRUGS (1)
  1. FLECTOR [Suspect]
     Indication: MUSCULOSKELETAL PAIN
     Dosage: UNK
     Route: 061
     Dates: start: 20120731, end: 20120802

REACTIONS (4)
  - Confusional state [Recovered/Resolved with Sequelae]
  - Dizziness [Unknown]
  - Amnesia [Unknown]
  - Chest pain [Recovered/Resolved with Sequelae]
